FAERS Safety Report 9027192 (Version 2)
Quarter: 2013Q1

REPORT INFORMATION
  Report Type: Spontaneous
  Country: IT (occurrence: IT)
  Receive Date: 20130123
  Receipt Date: 20130131
  Transmission Date: 20140127
  Serious: Yes (Hospitalization)
  Sender: FDA-Public Use
  Company Number: IT-ALLERGAN-1300681US

PATIENT
  Age: 5 Year
  Sex: Female

DRUGS (1)
  1. BOTOX [Suspect]
     Indication: CEREBRAL PALSY
     Dosage: 80 UNITS, SINGLE
     Route: 030
     Dates: start: 20121204, end: 20121204

REACTIONS (1)
  - Pain in extremity [Recovered/Resolved]
